FAERS Safety Report 7054681-7 (Version None)
Quarter: 2010Q4

REPORT INFORMATION
  Report Type: 
  Country: None (occurrence: None)
  Receive Date: 20101020
  Receipt Date: 20101011
  Transmission Date: 20110411
  Serious: Yes (Disabling, Other)
  Sender: FDA-Public Use
  Company Number: US-US-EMD SERONO, INC.-7021651

PATIENT
  Sex: Male

DRUGS (2)
  1. REBIF [Suspect]
     Indication: MULTIPLE SCLEROSIS
     Route: 058
     Dates: start: 20080607
  2. AMPYRA [Concomitant]
     Dates: start: 20100901

REACTIONS (5)
  - CRYING [None]
  - EMOTIONAL DISORDER [None]
  - JOINT INJURY [None]
  - MULTIPLE SCLEROSIS RELAPSE [None]
  - SUICIDAL BEHAVIOUR [None]
